FAERS Safety Report 4736897-5 (Version None)
Quarter: 2005Q3

REPORT INFORMATION
  Report Type: 
  Country: None (occurrence: None)
  Receive Date: 20050808
  Receipt Date: 20050801
  Transmission Date: 20060218
  Serious: Yes (Hospitalization)
  Sender: FDA-Public Use
  Company Number: NO-GLAXOSMITHKLINE-B0389682A

PATIENT
  Age: 72 Year
  Sex: Female

DRUGS (5)
  1. FORTUM [Suspect]
     Indication: PNEUMONIA
     Dosage: 1G THREE TIMES PER DAY
     Route: 042
     Dates: start: 20050621, end: 20050627
  2. ZANTAC 300 [Concomitant]
     Indication: PROPHYLAXIS AGAINST GASTROINTESTINAL ULCER
     Dosage: 150MG TWICE PER DAY
     Route: 048
  3. FRAGMIN [Concomitant]
  4. INSULIN [Concomitant]
  5. SELOKEN [Concomitant]

REACTIONS (5)
  - DERMATITIS BULLOUS [None]
  - HAEMORRHAGE [None]
  - HYPOACUSIS [None]
  - SKIN HAEMORRHAGE [None]
  - THROMBOCYTOPENIA [None]
